FAERS Safety Report 21408498 (Version 4)
Quarter: 2022Q4

REPORT INFORMATION
  Report Type: Report from Study
  Country: CA (occurrence: CA)
  Receive Date: 20221004
  Receipt Date: 20221128
  Transmission Date: 20230113
  Serious: Yes (Other)
  Sender: FDA-Public Use
  Company Number: CA-BRISTOL-MYERS SQUIBB COMPANY-2022-076124

PATIENT
  Age: 81 Year
  Sex: Male
  Weight: 88 kg

DRUGS (4)
  1. OPDIVO [Suspect]
     Active Substance: NIVOLUMAB
     Indication: Oesophageal squamous cell carcinoma
     Route: 042
     Dates: start: 20220119
  2. OPDIVO [Suspect]
     Active Substance: NIVOLUMAB
     Route: 042
     Dates: start: 20220119
  3. ALLOPURINOL [Concomitant]
     Active Substance: ALLOPURINOL
     Indication: Product used for unknown indication
     Route: 065
  4. METOPROLOL [Concomitant]
     Active Substance: METOPROLOL
     Indication: Product used for unknown indication
     Route: 065

REACTIONS (24)
  - Weight increased [Recovering/Resolving]
  - Blood pressure abnormal [Recovering/Resolving]
  - Pulse abnormal [Recovering/Resolving]
  - Herpes zoster [Recovering/Resolving]
  - Oedema peripheral [Not Recovered/Not Resolved]
  - Pollakiuria [Not Recovered/Not Resolved]
  - Neck pain [Not Recovered/Not Resolved]
  - Heart rate decreased [Unknown]
  - Rash [Unknown]
  - Groin pain [Unknown]
  - Faeces soft [Unknown]
  - Dizziness [Unknown]
  - Fatigue [Unknown]
  - Pain [Unknown]
  - Dyspnoea [Unknown]
  - Nausea [Unknown]
  - Depression [Unknown]
  - Somnolence [Unknown]
  - Appetite disorder [Unknown]
  - Depressed mood [Unknown]
  - Feeling abnormal [Unknown]
  - Disturbance in attention [Unknown]
  - Memory impairment [Unknown]
  - Contusion [Not Recovered/Not Resolved]

NARRATIVE: CASE EVENT DATE: 20220701
